FAERS Safety Report 18244310 (Version 1)
Quarter: 2020Q3

REPORT INFORMATION
  Report Type: Report from Study
  Country: None (occurrence: US)
  Receive Date: 20200909
  Receipt Date: 20200909
  Transmission Date: 20201103
  Serious: Yes (Other)
  Sender: FDA-Public Use
  Company Number: US-ABBVIE-20K-163-3548627-00

PATIENT
  Sex: Female

DRUGS (1)
  1. HUMIRA [Suspect]
     Active Substance: ADALIMUMAB
     Indication: UVEITIS
     Dosage: CITRATE FREE
     Route: 058

REACTIONS (8)
  - Vitreous floaters [Unknown]
  - Rash [Unknown]
  - Rash pruritic [Recovered/Resolved]
  - Nausea [Unknown]
  - Headache [Unknown]
  - Blindness [Unknown]
  - Abdominal pain upper [Unknown]
  - Drug ineffective [Recovering/Resolving]
